FAERS Safety Report 9772301 (Version 2)
Quarter: 2013Q4

REPORT INFORMATION
  Report Type: Spontaneous
  Country: US (occurrence: US)
  Receive Date: 20131219
  Receipt Date: 20131231
  Transmission Date: 20140711
  Serious: No
  Sender: FDA-Public Use
  Company Number: US-B.I. PHARMACEUTICALS,INC./RIDGEFIELD-2013-BI-41116BP

PATIENT
  Age: 86 Year
  Sex: Male
  Weight: 77 kg

DRUGS (14)
  1. PRADAXA [Suspect]
     Indication: ATRIAL FIBRILLATION
     Dosage: 300 MG
     Route: 048
     Dates: start: 2010, end: 201308
  2. PRADAXA [Suspect]
     Dosage: 150 MG
     Route: 048
     Dates: start: 201308
  3. VENTOLIN HFA [Concomitant]
     Indication: DYSPNOEA
     Route: 055
  4. MULTIVITAMIN [Concomitant]
     Route: 048
  5. QVAR INHALER [Concomitant]
     Indication: DYSPNOEA
     Route: 055
  6. DIGOXIN [Concomitant]
     Indication: ATRIAL FIBRILLATION
     Dosage: 0.25 MG
     Route: 048
  7. SIMVASTATIN [Concomitant]
     Indication: BLOOD CHOLESTEROL INCREASED
     Dosage: 40 MG
     Route: 048
  8. TAMSULOSIN [Concomitant]
     Indication: BENIGN PROSTATIC HYPERPLASIA
     Dosage: 0.4 MG
     Route: 048
  9. FINASTERIDE [Concomitant]
     Indication: BENIGN PROSTATIC HYPERPLASIA
     Dosage: 5 MG
     Route: 048
  10. FOLIC ACID [Concomitant]
     Indication: FOLATE DEFICIENCY
     Dosage: 1 MG
     Route: 048
  11. SUBLINGUAL NITROGLYCERINE [Concomitant]
     Indication: CHEST PAIN
  12. LISINOPRIL [Concomitant]
     Indication: HYPERTENSION
     Dosage: 10 MG
     Route: 048
  13. NITROGLYCERIN [Concomitant]
     Indication: ANGINA PECTORIS
  14. MYRBETRIQ [Concomitant]
     Indication: HYPERTONIC BLADDER
     Dosage: 25 MG
     Route: 048

REACTIONS (3)
  - Liver function test abnormal [Recovered/Resolved]
  - Blood potassium increased [Not Recovered/Not Resolved]
  - Renal impairment [Not Recovered/Not Resolved]
